FAERS Safety Report 4432624-X (Version None)
Quarter: 2004Q3

REPORT INFORMATION
  Report Type: 
  Country: None (occurrence: None)
  Receive Date: 20040813
  Receipt Date: 20040729
  Transmission Date: 20050211
  Serious: Yes (Death)
  Sender: FDA-Public Use
  Company Number: 237516

PATIENT
  Age: 65 Year
  Sex: Male

DRUGS (4)
  1. NOVOSEVEN [Suspect]
     Indication: FACTOR VII DEFICIENCY
     Dosage: 7.2 MG Q4 HRS (2 DOSES GIVEN)
     Dates: start: 20040529, end: 20040530
  2. DOLIPRANE (PARACETAMOL) [Concomitant]
  3. ACETAMINOPHEN [Concomitant]
  4. TRANXENE [Concomitant]

REACTIONS (11)
  - ABDOMINAL PAIN [None]
  - AGGRESSION [None]
  - ANAPHYLACTIC REACTION [None]
  - BLOOD CULTURE POSITIVE [None]
  - ENTEROBACTER INFECTION [None]
  - GROIN PAIN [None]
  - HYPERSENSITIVITY [None]
  - PYREXIA [None]
  - SEPTIC SHOCK [None]
  - TREMOR [None]
  - VOMITING [None]
